FAERS Safety Report 7659563-5 (Version None)
Quarter: 2011Q3

REPORT INFORMATION
  Report Type: 
  Country: None (occurrence: None)
  Receive Date: 20110805
  Receipt Date: 20110729
  Transmission Date: 20111222
  Serious: Yes (Other)
  Sender: FDA-Public Use
  Company Number: US-ALEXION-A201100756

PATIENT
  Sex: Male

DRUGS (6)
  1. COUMADIN [Concomitant]
  2. SOLIRIS [Suspect]
     Indication: PAROXYSMAL NOCTURNAL HAEMOGLOBINURIA
     Dosage: UNK
     Route: 042
  3. AMBIEN [Concomitant]
     Dosage: UNK PRN
  4. GLUCOSAMINE /CHOND [Concomitant]
     Dosage: UNK PRN
  5. SOLIRIS [Suspect]
     Dosage: 1200 MG, Q12DAYS
     Route: 042
     Dates: start: 20110323
  6. ACETAMINOPHEN [Concomitant]
     Dosage: UNK PRN

REACTIONS (2)
  - GAIT DISTURBANCE [None]
  - EOSINOPHILIC PNEUMONIA [None]
